FAERS Safety Report 7623328-0 (Version None)
Quarter: 2011Q3

REPORT INFORMATION
  Report Type: 
  Country: None (occurrence: None)
  Receive Date: 20110720
  Receipt Date: 20110710
  Transmission Date: 20111222
  Serious: Yes (Hospitalization, Other)
  Sender: FDA-Public Use
  Company Number: HR-JNJFOC-20110501972

PATIENT
  Age: 29 Year
  Sex: Male

DRUGS (40)
  1. RISPERIDONE [Suspect]
     Indication: ACUTE PSYCHOSIS
     Route: 065
     Dates: start: 20010701
  2. XANAX [Suspect]
     Dosage: 3X1/2 TABLET
     Route: 065
  3. XANAX [Suspect]
     Indication: DELUSION
     Dosage: 3X1 TABLET
     Route: 065
  4. XANAX [Suspect]
     Dosage: 3X1/2 TABLET
     Route: 065
  5. XANAX [Suspect]
     Indication: ANXIETY
     Dosage: 3X1 TABLET
     Route: 065
  6. PROMAZINE HYDROCHLORIDE [Suspect]
     Indication: HYPOCHONDRIASIS
  7. PROMAZINE HYDROCHLORIDE [Suspect]
     Indication: PSYCHIATRIC SYMPTOM
  8. AKINETON [Suspect]
     Indication: ACUTE PSYCHOSIS
     Route: 065
  9. XANAX [Suspect]
     Indication: PSYCHIATRIC SYMPTOM
     Dosage: 3X1/2 TABLET
     Route: 065
  10. XANAX [Suspect]
     Dosage: 3X1 TABLET
     Route: 065
  11. PAROXETINE HCL [Suspect]
     Indication: DELUSION
     Dosage: 1,0,0
  12. PAROXETINE HCL [Suspect]
     Indication: PSYCHIATRIC SYMPTOM
     Dosage: 1,0,0
  13. DIAZEPAM [Suspect]
  14. DIAZEPAM [Suspect]
  15. DIAZEPAM [Suspect]
  16. ZOLPIDEM TARTRATE [Suspect]
     Indication: HYPOCHONDRIASIS
     Route: 065
  17. THIORIDAZINE HCL [Suspect]
     Indication: ACUTE PSYCHOSIS
     Dosage: 1,1,2
     Route: 065
     Dates: start: 20010701
  18. XANAX [Suspect]
     Dosage: 3X1/2 TABLET
     Route: 065
  19. RISPERIDONE [Suspect]
     Route: 065
  20. PAROXETINE HCL [Suspect]
     Indication: ANXIETY
     Dosage: 1,0,0
  21. DIAZEPAM [Suspect]
  22. PROMAZINE HYDROCHLORIDE [Suspect]
     Indication: ANXIETY
  23. ZOLPIDEM TARTRATE [Suspect]
     Indication: ANXIETY
     Route: 065
  24. ZOLPIDEM TARTRATE [Suspect]
     Indication: DELUSION
     Route: 065
  25. ZOLPIDEM TARTRATE [Suspect]
     Indication: PSYCHIATRIC SYMPTOM
     Route: 065
  26. CLOZAPINE [Suspect]
     Dosage: 1/2,0,1
     Route: 065
  27. PAROXETINE HCL [Suspect]
     Indication: HYPOCHONDRIASIS
     Dosage: 1,0,0
  28. DIAZEPAM [Suspect]
     Indication: ANXIETY
  29. DIAZEPAM [Suspect]
     Indication: PSYCHIATRIC SYMPTOM
  30. RISPERIDONE [Suspect]
     Indication: SCHIZOPHRENIA
     Route: 030
     Dates: start: 20080601, end: 20090401
  31. RISPERIDONE [Suspect]
     Route: 030
     Dates: start: 20090401
  32. RISPERIDONE [Suspect]
     Dosage: 1/2,0,1
     Route: 065
  33. AKINETON [Suspect]
     Route: 065
     Dates: start: 20010701
  34. CLOZAPINE [Suspect]
     Indication: SCHIZOPHRENIA
     Route: 065
     Dates: start: 20090401
  35. ESCITALOPRAM [Suspect]
     Indication: DEPRESSION
     Route: 065
     Dates: start: 20090801
  36. XANAX [Suspect]
     Indication: HYPOCHONDRIASIS
     Dosage: 3X1 TABLET
     Route: 065
  37. PROMAZINE HYDROCHLORIDE [Suspect]
     Indication: DELUSION
  38. RISPERIDONE [Suspect]
     Route: 065
     Dates: start: 20080901
  39. DIAZEPAM [Suspect]
     Indication: HYPOCHONDRIASIS
  40. DIAZEPAM [Suspect]
     Indication: DELUSION

REACTIONS (3)
  - TOXICITY TO VARIOUS AGENTS [None]
  - SCHIZOPHRENIA [None]
  - SUBSTANCE ABUSE [None]
